FAERS Safety Report 11934418 (Version 1)
Quarter: 2016Q1

REPORT INFORMATION
  Report Type: Spontaneous
  Country: US (occurrence: US)
  Receive Date: 20160121
  Receipt Date: 20160121
  Transmission Date: 20160526
  Serious: No
  Sender: FDA-Public Use
  Company Number: US-PERRIGO-15US010381

PATIENT
  Age: 50 Year
  Sex: Male
  Weight: 86.17 kg

DRUGS (1)
  1. ACETAMINOPHEN\CAFFEINE\SALICYLATE [Suspect]
     Active Substance: ACETAMINOPHEN\CAFFEINE\SALICYLIC ACID
     Indication: MIGRAINE
     Dosage: 3 TABLETS, PRN
     Route: 048
     Dates: start: 2012, end: 20150930

REACTIONS (3)
  - No adverse event [Recovered/Resolved]
  - Incorrect dose administered [Recovered/Resolved]
  - Expired product administered [Recovered/Resolved]

NARRATIVE: CASE EVENT DATE: 2012
